FAERS Safety Report 25634628 (Version 1)
Quarter: 2025Q3

REPORT INFORMATION
  Report Type: Spontaneous
  Country: GB (occurrence: GB)
  Receive Date: 20250801
  Receipt Date: 20250801
  Transmission Date: 20251021
  Serious: Yes (Hospitalization, Other)
  Sender: PFIZER
  Company Number: None

PATIENT
  Age: 41 Year
  Sex: Female

DRUGS (38)
  1. PANTOPRAZOLE [Suspect]
     Active Substance: PANTOPRAZOLE
     Route: 065
  2. HYDROCORTISONE/SULFUR [Concomitant]
  3. SALICYLIC ACID [Concomitant]
     Active Substance: SALICYLIC ACID
  4. AMOXICILLIN [Concomitant]
     Active Substance: AMOXICILLIN
     Dosage: 500 MILLIGRAM, TID
  5. PACLITAXEL [Concomitant]
     Active Substance: PACLITAXEL
     Indication: Palliative care
  6. DIAZEPAM [Concomitant]
     Active Substance: DIAZEPAM
     Dosage: 2 MILLIGRAM, TID
  7. DOMPERIDONE/PARACETAMOL [Concomitant]
  8. COAL TAR/HYDROCORTISONE/SALICYLIC ACID [Concomitant]
  9. BETAMETHASONE DIPROPIONATE\CALCIPOTRIENE [Concomitant]
     Active Substance: BETAMETHASONE DIPROPIONATE\CALCIPOTRIENE
  10. HYDROCORTISONE ACETATE\LIDOCAINE HYDROCHLORIDE [Concomitant]
     Active Substance: HYDROCORTISONE ACETATE\LIDOCAINE HYDROCHLORIDE
  11. CLINDAMYCIN/HYDROCORTISONE [Concomitant]
  12. CINCHOCAINE/HYDROCORTISONE [Concomitant]
  13. SENNOSIDES A AND B [Concomitant]
     Active Substance: SENNOSIDES A AND B
     Dosage: 7.5 MILLIGRAM, BID
  14. POLYETHYLENE GLYCOL 3350\POTASSIUM CHLORIDE\SODIUM BICARBONATE\SODIUM [Concomitant]
     Active Substance: POLYETHYLENE GLYCOL 3350\POTASSIUM CHLORIDE\SODIUM BICARBONATE\SODIUM CHLORIDE
     Indication: Constipation
  15. ZOPICLONE [Concomitant]
     Active Substance: ZOPICLONE
  16. PROCHLORPERAZINE [Concomitant]
     Active Substance: PROCHLORPERAZINE
     Dosage: 5 MILLIGRAM, TID
  17. OMEPRAZOLE [Concomitant]
     Active Substance: OMEPRAZOLE
     Dosage: 20 MILLIGRAM, QD
  18. LOPERAMIDE [Concomitant]
     Active Substance: LOPERAMIDE
  19. CALCIUM CARBONATE\CHOLECALCIFEROL [Concomitant]
     Active Substance: CALCIUM CARBONATE\CHOLECALCIFEROL
  20. HYDROCORTISONE [Concomitant]
     Active Substance: HYDROCORTISONE
     Dosage: 1 PERCENT, BID
  21. PREGABALIN [Concomitant]
     Active Substance: PREGABALIN
  22. DOMPERIDONE [Concomitant]
     Active Substance: DOMPERIDONE
  23. OXYCODONE [Concomitant]
     Active Substance: OXYCODONE
  24. MORPHINE [Concomitant]
     Active Substance: MORPHINE
  25. LORAZEPAM [Concomitant]
     Active Substance: LORAZEPAM
  26. DENOSUMAB [Concomitant]
     Active Substance: DENOSUMAB
     Indication: Palliative care
  27. OILATUM PLUS [Concomitant]
  28. BETAMETHASONE VALERATE [Concomitant]
     Active Substance: BETAMETHASONE VALERATE
     Dosage: 0.025 PERCENT, QD
  29. AVEENO [Concomitant]
     Active Substance: DIMETHICONE\HOMOSALATE\OCTINOXATE\OCTISALATE\TITANIUM DIOXIDE
  30. HYDROCORTISONE\OXYTETRACYCLINE [Concomitant]
     Active Substance: HYDROCORTISONE\OXYTETRACYCLINE
  31. ECONAZOLE/HYDROCORTISONE [Concomitant]
  32. LOPERAMIDE/SIMETICONE [Concomitant]
  33. CELECOXIB [Concomitant]
     Active Substance: CELECOXIB
     Dosage: 200 MILLIGRAM, BID
  34. HYDROCORTISONE/ICHTHAMMOL [Concomitant]
  35. CYCLIZINE [Concomitant]
     Active Substance: CYCLIZINE
  36. OXYCODONE HYDROCHLORIDE [Concomitant]
     Active Substance: OXYCODONE HYDROCHLORIDE
     Dosage: 100 MILLIGRAM, BID
  37. DOCUSATE [Concomitant]
     Active Substance: DOCUSATE
  38. HYDROCORTISONE/MENTHOL [Concomitant]

REACTIONS (2)
  - Erythema [Unknown]
  - Swelling face [Unknown]
